FAERS Safety Report 5227527-7 (Version None)
Quarter: 2007Q1

REPORT INFORMATION
  Report Type: 
  Country: None (occurrence: None)
  Receive Date: 20070202
  Receipt Date: 20070122
  Transmission Date: 20070707
  Serious: Yes (Other)
  Sender: FDA-Public Use
  Company Number: US-SHR-US-2006-016119

PATIENT
  Age: 24 Year
  Sex: Female

DRUGS (3)
  1. BETASERON [Suspect]
     Indication: RELAPSING-REMITTING MULTIPLE SCLEROSIS
     Dosage: 6 MIU, EVERY 2D
     Route: 058
     Dates: start: 20060419
  2. BETASERON [Suspect]
     Dosage: 8 MIU, EVERY 2H
     Route: 058
  3. LYRICA [Concomitant]
     Dosage: 50 MG, 3X/DAY

REACTIONS (18)
  - CONVERSION DISORDER [None]
  - DECREASED APPETITE [None]
  - DEPRESSED MOOD [None]
  - ESCHERICHIA INFECTION [None]
  - FATIGUE [None]
  - HEADACHE [None]
  - LOSS OF CONSCIOUSNESS [None]
  - MEMORY IMPAIRMENT [None]
  - MIGRAINE [None]
  - MULTIPLE SCLEROSIS [None]
  - MUSCULAR WEAKNESS [None]
  - NAUSEA [None]
  - PAIN [None]
  - PYREXIA [None]
  - SOMNOLENCE [None]
  - SWELLING FACE [None]
  - URINARY TRACT INFECTION [None]
  - VOMITING [None]
